APPROVED DRUG PRODUCT: CARBINOXAMINE MALEATE
Active Ingredient: CARBINOXAMINE MALEATE
Strength: 4MG/5ML
Dosage Form/Route: SOLUTION;ORAL
Application: A090418 | Product #001
Applicant: CYPRESS PHARMACEUTICAL INC
Approved: May 4, 2010 | RLD: No | RS: No | Type: DISCN